FAERS Safety Report 11037964 (Version 2)
Quarter: 2015Q2

REPORT INFORMATION
  Report Type: Spontaneous
  Country: US (occurrence: US)
  Receive Date: 20150416
  Receipt Date: 20150428
  Transmission Date: 20150821
  Serious: Yes (Death, Hospitalization, Other)
  Sender: FDA-Public Use
  Company Number: US-009507513-1504USA015474

PATIENT
  Sex: Male
  Weight: 92.97 kg

DRUGS (1)
  1. JANUMET [Suspect]
     Active Substance: METFORMIN HYDROCHLORIDE\SITAGLIPTIN PHOSPHATE
     Indication: TYPE 2 DIABETES MELLITUS
     Dosage: 50-500MG BID
     Route: 048
     Dates: start: 200804, end: 201004

REACTIONS (12)
  - Hiatus hernia [Unknown]
  - Metastasis [Unknown]
  - Embolic cerebral infarction [Unknown]
  - Hypertension [Unknown]
  - Hyperlipidaemia [Unknown]
  - Metastases to central nervous system [Unknown]
  - Acute myocardial infarction [Unknown]
  - Pancreatitis [Unknown]
  - Pancreatic carcinoma [Fatal]
  - Ischaemic stroke [Unknown]
  - Ischaemic stroke [Unknown]
  - Emphysema [Unknown]

NARRATIVE: CASE EVENT DATE: 201004
